FAERS Safety Report 8372018-8 (Version None)
Quarter: 2012Q2

REPORT INFORMATION
  Report Type: 
  Country: None (occurrence: None)
  Receive Date: 20120518
  Receipt Date: 20120503
  Transmission Date: 20120825
  Serious: Yes (Other)
  Sender: FDA-Public Use
  Company Number: CHPA2012US002781

PATIENT
  Sex: Female
  Weight: 54.422 kg

DRUGS (2)
  1. EXCEDRIN EXTRA STRENGTH TABLETS [Suspect]
     Indication: HEADACHE
     Dosage: UNK, PRN
     Route: 048
     Dates: start: 20050101, end: 20120110
  2. EXCEDRIN EXTRA STRENGTH TABLETS [Suspect]
     Dosage: 3-4 DF, QD
     Route: 048
     Dates: start: 20070101, end: 20111201

REACTIONS (13)
  - ROAD TRAFFIC ACCIDENT [None]
  - HEADACHE [None]
  - AMNESIA [None]
  - CONFUSIONAL STATE [None]
  - NAUSEA [None]
  - INCORRECT DRUG ADMINISTRATION DURATION [None]
  - DISTURBANCE IN ATTENTION [None]
  - DIZZINESS [None]
  - DIPLOPIA [None]
  - HYPOAESTHESIA [None]
  - TENSION HEADACHE [None]
  - SENSORY DISTURBANCE [None]
  - DRUG WITHDRAWAL HEADACHE [None]
